FAERS Safety Report 15822929 (Version 4)
Quarter: 2019Q2

REPORT INFORMATION
  Report Type: Spontaneous
  Country: US (occurrence: US)
  Receive Date: 20190114
  Receipt Date: 20190614
  Transmission Date: 20190711
  Serious: Yes (Other)
  Sender: FDA-Public Use
  Company Number: US-PFIZER INC-2019014050

PATIENT
  Age: 67 Year
  Sex: Male
  Weight: 146 kg

DRUGS (3)
  1. NORVASC [Suspect]
     Active Substance: AMLODIPINE BESYLATE
     Indication: BLOOD PRESSURE MANAGEMENT
     Dosage: 5 MG, UNK
     Route: 048
     Dates: start: 2014
  2. NORVASC [Suspect]
     Active Substance: AMLODIPINE BESYLATE
     Dosage: UNK
     Dates: start: 20170802
  3. NORVASC [Suspect]
     Active Substance: AMLODIPINE BESYLATE
     Dosage: 10 MG, DAILY
     Route: 048
     Dates: end: 20190104

REACTIONS (12)
  - Dyspnoea [Recovered/Resolved]
  - Joint swelling [Recovering/Resolving]
  - Pyrexia [Unknown]
  - Gait disturbance [Unknown]
  - Myalgia [Recovered/Resolved]
  - Suffocation feeling [Recovered/Resolved]
  - Blood pressure increased [Recovering/Resolving]
  - Pain [Recovered/Resolved]
  - Drug hypersensitivity [Recovered/Resolved]
  - Chest pain [Recovered/Resolved]
  - Headache [Unknown]
  - Arthralgia [Recovered/Resolved]

NARRATIVE: CASE EVENT DATE: 201812
